FAERS Safety Report 8816952 (Version 1)
Quarter: 2012Q4

REPORT INFORMATION
  Report Type: Spontaneous
  Country: US (occurrence: None)
  Receive Date: 20121003
  Receipt Date: 20121003
  Transmission Date: 20130627
  Serious: Yes (Life-Threatening, Hospitalization, Other)
  Sender: FDA-Public Use
  Company Number: None

PATIENT
  Age: 82 Year
  Sex: Male
  Weight: 73.94 kg

DRUGS (1)
  1. DAPTOMYCIN [Suspect]
     Indication: ENTEROCOCCAL BACTEREMIA
     Route: 042

REACTIONS (21)
  - Pruritus [None]
  - Skin ulcer [None]
  - Dry skin [None]
  - Pneumonia [None]
  - Productive cough [None]
  - Pyrexia [None]
  - Hyperhidrosis [None]
  - Feeling hot [None]
  - Dyspnoea [None]
  - Chest pain [None]
  - Dyspnoea [None]
  - Painful respiration [None]
  - Asthenia [None]
  - Dysstasia [None]
  - Mobility decreased [None]
  - Confusional state [None]
  - Fatigue [None]
  - Hypersomnia [None]
  - Decreased appetite [None]
  - Tongue haemorrhage [None]
  - Wheezing [None]
